FAERS Safety Report 6157117-3 (Version None)
Quarter: 2009Q2

REPORT INFORMATION
  Report Type: 
  Country: None (occurrence: None)
  Receive Date: 20090413
  Receipt Date: 20090213
  Transmission Date: 20091009
  Serious: Yes (Hospitalization)
  Sender: FDA-Public Use
  Company Number: 233102

PATIENT
  Age: 60 Year
  Sex: Male
  Weight: 86 kg

DRUGS (20)
  1. CARBOPLATIN [Suspect]
     Indication: NON-SMALL CELL LUNG CANCER
     Dosage: 680 MG, 1 IN 3 WEEK, INTRAVENOUS; 680 MG ( 1IN 3 WEEK) INTRAVENOUS
     Route: 042
     Dates: start: 20081106
  2. CARBOPLATIN [Suspect]
     Indication: NON-SMALL CELL LUNG CANCER
     Dosage: 680 MG, 1 IN 3 WEEK, INTRAVENOUS; 680 MG ( 1IN 3 WEEK) INTRAVENOUS
     Route: 042
     Dates: start: 20081106
  3. PACLITAXEL [Suspect]
     Indication: NON-SMALL CELL LUNG CANCER
     Dosage: 318 MG, 1 IN 3 WEEKS, INTRAVENOUS; 318 MG (1 IN 3 WEEKS) INTRAVENOUS
     Route: 042
     Dates: start: 20081106
  4. PACLITAXEL [Suspect]
     Indication: NON-SMALL CELL LUNG CANCER
     Dosage: 318 MG, 1 IN 3 WEEKS, INTRAVENOUS; 318 MG (1 IN 3 WEEKS) INTRAVENOUS
     Route: 042
     Dates: start: 20081106
  5. AVASTIN [Suspect]
     Indication: NON-SMALL CELL LUNG CANCER
     Dosage: 1200 MG, 1 IN 3 WEEK, INTRAVENOUS; 1200 MG (1 IN 3 WEEK) INTRAVENOUS
     Route: 042
     Dates: start: 20081106
  6. AVASTIN [Suspect]
     Indication: NON-SMALL CELL LUNG CANCER
     Dosage: 1200 MG, 1 IN 3 WEEK, INTRAVENOUS; 1200 MG (1 IN 3 WEEK) INTRAVENOUS
     Route: 042
     Dates: start: 20081106
  7. PREDNISOLONE [Concomitant]
  8. (SALBUTAMOL) [Concomitant]
  9. (MOVICOL /01053601/) [Concomitant]
  10. (OXYNORM) [Concomitant]
  11. OXYCODONE HCL [Concomitant]
  12. (DICLOFENAC) [Concomitant]
  13. OMEPRAZOLE [Concomitant]
  14. (MICROLAX /00285401/) [Concomitant]
  15. (ZOPICLONE) [Concomitant]
  16. (VITAMIN B COMPLEX /00003501/) [Concomitant]
  17. (BENDROFLUMETHIAZIDE) [Concomitant]
  18. ATROVENT [Concomitant]
  19. AMITRIPTLINE HYDROCHLORIDE TAB [Concomitant]
  20. (ANUSOL /00117301/) [Concomitant]

REACTIONS (8)
  - CHEST DISCOMFORT [None]
  - CONSTIPATION [None]
  - INSOMNIA [None]
  - LOWER RESPIRATORY TRACT INFECTION [None]
  - NEURALGIA [None]
  - PAIN [None]
  - PROCTALGIA [None]
  - WHEEZING [None]
